FAERS Safety Report 16132150 (Version 3)
Quarter: 2019Q1

REPORT INFORMATION
  Report Type: Spontaneous
  Country: GB (occurrence: GB)
  Receive Date: 20190329
  Receipt Date: 20190330
  Transmission Date: 20190418
  Serious: Yes (Other)
  Sender: FDA-Public Use
  Company Number: GB-ACCORD-115457

PATIENT
  Age: 67 Year
  Sex: Male
  Weight: 83.5 kg

DRUGS (4)
  1. LISINOPRIL. [Suspect]
     Active Substance: LISINOPRIL
     Indication: HYPERTENSION
     Dosage: 5MG OD INITIALLY, REDUCING TO 2.5MG OD ON 08/OCT/2018
     Dates: start: 20180327, end: 20181008
  2. CETIRIZINE [Concomitant]
     Active Substance: CETIRIZINE HYDROCHLORIDE
  3. LISINOPRIL. [Suspect]
     Active Substance: LISINOPRIL
     Indication: HYPERTENSION
     Dosage: 5MG OD INITIALLY, REDUCING TO 2.5MG OD ON 8/10/18
     Dates: start: 20181008, end: 20181212
  4. AMLODIPINE [Concomitant]
     Active Substance: AMLODIPINE BESYLATE

REACTIONS (2)
  - Swollen tongue [Recovered/Resolved]
  - Oral allergy syndrome [Recovered/Resolved]

NARRATIVE: CASE EVENT DATE: 20180402
